FAERS Safety Report 7281868-0 (Version None)
Quarter: 2011Q1

REPORT INFORMATION
  Report Type: 
  Country: None (occurrence: None)
  Receive Date: 20110208
  Receipt Date: 20110204
  Transmission Date: 20110831
  Serious: Yes (Hospitalization)
  Sender: FDA-Public Use
  Company Number: US-B.I. PHARMACEUTICALS,INC./RIDGEFIELD-2011-BP-01813BP

PATIENT
  Sex: Female

DRUGS (5)
  1. NEXIUM [Concomitant]
     Indication: HIATUS HERNIA
  2. SYNTHROID [Concomitant]
     Indication: HYPOTHYROIDISM
  3. CYTOMEL [Concomitant]
     Indication: HYPOTHYROIDISM
     Dosage: 20 MCG
  4. HYDROCHLOROTHIAZIDE [Concomitant]
     Indication: HYPERTENSION
     Dosage: 25 MG
     Dates: start: 19860101
  5. PRADAXA [Suspect]
     Indication: ATRIAL FIBRILLATION
     Dosage: 300 MG
     Route: 048
     Dates: start: 20110125

REACTIONS (3)
  - SENSATION OF FOREIGN BODY [None]
  - CHEST DISCOMFORT [None]
  - DIZZINESS [None]
